FAERS Safety Report 10483372 (Version 2)
Quarter: 2014Q4

REPORT INFORMATION
  Report Type: Spontaneous
  Country: FR (occurrence: FR)
  Receive Date: 20140930
  Receipt Date: 20141001
  Transmission Date: 20150528
  Serious: Yes (Hospitalization, Other)
  Sender: FDA-Public Use
  Company Number: FR-009507513-1409FRA014002

PATIENT
  Age: 63 Year
  Sex: Female

DRUGS (6)
  1. FUCIDINE [Suspect]
     Active Substance: FUSIDIC ACID
     Indication: INFECTION
     Dosage: UNK
     Dates: start: 20140818, end: 20140825
  2. VANCOMYCIN [Suspect]
     Active Substance: VANCOMYCIN
     Dosage: UNK
     Dates: start: 20140728, end: 20140817
  3. TAVANIC [Suspect]
     Active Substance: LEVOFLOXACIN
     Indication: INFECTION
     Dosage: UNK
     Dates: start: 20140818, end: 20140825
  4. DAPTOMYCIN. [Suspect]
     Active Substance: DAPTOMYCIN
     Dosage: UNK
     Dates: end: 20140905
  5. OFLOCET (OFLOXACIN HYDROCHLORIDE) [Suspect]
     Active Substance: OFLOXACIN
     Dosage: UNK
     Dates: start: 20140728, end: 20140817
  6. TIENAM IV 250MG/250MG, POUDRE POUR PERFUSION [Suspect]
     Active Substance: CILASTATIN SODIUM\IMIPENEM
     Dosage: UNK
     Dates: end: 20140905

REACTIONS (6)
  - White blood cell count increased [Recovered/Resolved]
  - Eosinophilia [Recovered/Resolved]
  - Blood creatinine increased [Recovered/Resolved]
  - Rash morbilliform [Recovered/Resolved]
  - Drug reaction with eosinophilia and systemic symptoms [Recovered/Resolved]
  - Blood alkaline phosphatase increased [Recovered/Resolved]

NARRATIVE: CASE EVENT DATE: 20140825
